FAERS Safety Report 4271974-7 (Version None)
Quarter: 2004Q1

REPORT INFORMATION
  Report Type: 
  Country: None (occurrence: None)
  Receive Date: 20040115
  Receipt Date: 20020724
  Transmission Date: 20041129
  Serious: Yes (Other)
  Sender: FDA-Public Use
  Company Number: US-BRISTOL-MYERS SQUIBB COMPANY-11963568

PATIENT
  Age: 60 Year
  Sex: Male

DRUGS (9)
  1. ATORVASTATIN [Suspect]
     Dosage: LAST DOSE PRIOR TO EVENT = 16-MAY-2002
     Route: 048
     Dates: start: 20010518
  2. GATIFLOXACIN [Suspect]
     Route: 048
     Dates: start: 20010604, end: 20020516
  3. ASPIRIN [Concomitant]
     Route: 048
     Dates: start: 20010518
  4. ATENOLOL [Concomitant]
     Route: 048
     Dates: start: 20000823
  5. ACIPHEX [Concomitant]
     Route: 048
     Dates: start: 20020419
  6. TAMSULOSIN HCL [Concomitant]
     Route: 048
     Dates: start: 20020101
  7. ALLEGRA [Concomitant]
     Route: 048
     Dates: start: 20010901
  8. NASONEX [Concomitant]
     Route: 050
     Dates: start: 20010719
  9. IPRATROPIUM BROMIDE [Concomitant]
     Route: 050
     Dates: start: 20020210

REACTIONS (1)
  - DIABETES MELLITUS [None]
